FAERS Safety Report 17219957 (Version 3)
Quarter: 2020Q2

REPORT INFORMATION
  Report Type: Spontaneous
  Country: IT (occurrence: IT)
  Receive Date: 20191231
  Receipt Date: 20200422
  Transmission Date: 20200713
  Serious: Yes (Hospitalization, Other)
  Sender: FDA-Public Use
  Company Number: IT-AMGEN-ITASP2019215080

PATIENT

DRUGS (3)
  1. CINACALCET HCL [Suspect]
     Active Substance: CINACALCET HYDROCHLORIDE
     Indication: HYPERPARATHYROIDISM SECONDARY
     Dosage: UNK
     Route: 065
  2. VITAMIN D [COLECALCIFEROL] [Concomitant]
     Active Substance: CHOLECALCIFEROL
  3. PARICALCITOL. [Concomitant]
     Active Substance: PARICALCITOL

REACTIONS (9)
  - Fracture [Unknown]
  - Treatment noncompliance [Unknown]
  - Graft complication [Unknown]
  - Cardiovascular disorder [Unknown]
  - End stage renal disease [Unknown]
  - Sepsis [Unknown]
  - Implantation complication [Unknown]
  - Complication associated with device [Unknown]
  - Chronic kidney disease [Unknown]
